FAERS Safety Report 4300798-7 (Version None)
Quarter: 2004Q1

REPORT INFORMATION
  Report Type: 
  Country: None (occurrence: None)
  Receive Date: 20040218
  Receipt Date: 20031129
  Transmission Date: 20041129
  Serious: No
  Sender: FDA-Public Use
  Company Number: 2003-10-1311

PATIENT
  Sex: Male

DRUGS (2)
  1. PEG-INTRON [Suspect]
     Dosage: 120 MCG QW SUBCUTANEOUS
     Route: 058
     Dates: start: 20030801
  2. REBETOL [Suspect]
     Dosage: 1000 MG QD ORAL
     Route: 048
     Dates: start: 20030801

REACTIONS (1)
  - MALAISE [None]
